FAERS Safety Report 24716789 (Version 3)
Quarter: 2025Q1

REPORT INFORMATION
  Report Type: Spontaneous
  Country: US (occurrence: US)
  Receive Date: 20241210
  Receipt Date: 20250317
  Transmission Date: 20250409
  Serious: No
  Sender: BRISTOL-MYERS SQUIBB COMPANY
  Company Number: US-BRISTOL-MYERS SQUIBB COMPANY-2024-191025

PATIENT
  Age: 63 Year
  Sex: Female

DRUGS (3)
  1. ORENCIA [Suspect]
     Active Substance: ABATACEPT
     Indication: Rheumatoid arthritis
     Route: 058
     Dates: start: 202410
  2. ORENCIA [Suspect]
     Active Substance: ABATACEPT
     Dosage: DOSE: 125 MG/ML
     Route: 058
     Dates: start: 202410
  3. ORENCIA [Suspect]
     Active Substance: ABATACEPT
     Route: 058
     Dates: start: 202410

REACTIONS (6)
  - Skin infection [Not Recovered/Not Resolved]
  - Furuncle [Not Recovered/Not Resolved]
  - Peripheral swelling [Unknown]
  - Pain in extremity [Unknown]
  - Arthralgia [Unknown]
  - Neck pain [Unknown]
